FAERS Safety Report 11030176 (Version 7)
Quarter: 2019Q2

REPORT INFORMATION
  Report Type: Report from Study
  Country: FR (occurrence: FR)
  Receive Date: 20150415
  Receipt Date: 20190515
  Transmission Date: 20190711
  Serious: Yes (Hospitalization)
  Sender: FDA-Public Use
  Company Number: FR-AMGEN-FRANI2015035996

PATIENT
  Age: 68 Year
  Sex: Female
  Weight: 84 kg

DRUGS (16)
  1. DAIVOBET [Concomitant]
     Active Substance: BETAMETHASONE DIPROPIONATE\CALCIPOTRIENE
     Dosage: UNK
     Dates: start: 20151126
  2. DERMOVAL [Concomitant]
     Dosage: UNK
     Dates: start: 20150408
  3. FLECAINE [Concomitant]
     Active Substance: FLECAINIDE
     Dosage: UNK
     Dates: start: 20170728
  4. KARDEGIC [Concomitant]
     Active Substance: ASPIRIN DL-LYSINE
     Dosage: 75 MILLIGRAM, QD
     Route: 048
     Dates: start: 20130620
  5. ETANERCEPT [Suspect]
     Active Substance: ETANERCEPT
     Indication: PSORIASIS
     Dosage: 50 MILLIGRAM, QWK
     Route: 058
     Dates: start: 20141107, end: 20150323
  6. ACITRETIN. [Suspect]
     Active Substance: ACITRETIN
     Dosage: 20 MILLIGRAM, QD
     Route: 048
     Dates: start: 20180126, end: 20180323
  7. ECO [Concomitant]
     Dosage: UNK
     Dates: start: 20180323, end: 201804
  8. STELARA [Suspect]
     Active Substance: USTEKINUMAB
     Indication: PRODUCT USED FOR UNKNOWN INDICATION
     Dosage: 90 MILLIGRAM, CYCLIC EVERY 4 WEEKS
     Route: 058
     Dates: start: 20170728, end: 20170828
  9. ACITRETIN. [Suspect]
     Active Substance: ACITRETIN
     Indication: PRODUCT USED FOR UNKNOWN INDICATION
     Dosage: 10 MILLIGRAM, QD
     Route: 048
     Dates: start: 20170728, end: 20180126
  10. STRESAM [Concomitant]
     Active Substance: ETIFOXINE
     Dosage: UNK
     Dates: start: 20180123
  11. LOCAPRED [Concomitant]
     Active Substance: DESONIDE
     Dosage: UNK
     Dates: start: 20180323
  12. STELARA [Suspect]
     Active Substance: USTEKINUMAB
     Dosage: 90 MILLIGRAM, CYCLIC EVERY 12 WEEKS
     Route: 058
     Dates: start: 20170828, end: 20171027
  13. STELARA [Suspect]
     Active Substance: USTEKINUMAB
     Dosage: 90 MILLIGRAM, CYCLIC EVERY 10 WEEKS
     Route: 058
     Dates: start: 20171027, end: 20180126
  14. STELARA [Suspect]
     Active Substance: USTEKINUMAB
     Dosage: 90 MILLIGRAM, CYCLIC EVERY 8 WEEKS
     Route: 058
     Dates: start: 20180126
  15. GLYCEROTONE [Concomitant]
     Dosage: UNK
     Dates: start: 20180323
  16. COLD CREAM NATUREL [Concomitant]
     Dosage: UNK
     Dates: start: 20150408

REACTIONS (4)
  - Pruritus [Recovering/Resolving]
  - Psoriasis [Recovering/Resolving]
  - Drug ineffective [Recovering/Resolving]
  - Cutaneous T-cell lymphoma [Not Recovered/Not Resolved]

NARRATIVE: CASE EVENT DATE: 20150330
